FAERS Safety Report 20755689 (Version 1)
Quarter: 2022Q2

REPORT INFORMATION
  Report Type: Spontaneous
  Country: US (occurrence: US)
  Receive Date: 20220427
  Receipt Date: 20220427
  Transmission Date: 20220721
  Serious: Yes (Other)
  Sender: FDA-Public Use
  Company Number: US-SA-2022SA140680

PATIENT
  Age: 72 Year
  Sex: Male

DRUGS (1)
  1. DUPILUMAB [Suspect]
     Active Substance: DUPILUMAB
     Indication: Dermatitis atopic
     Dosage: 300 MG, QOW

REACTIONS (7)
  - Conjunctival scar [Recovered/Resolved]
  - Ocular hyperaemia [Recovered/Resolved]
  - Eye irritation [Recovered/Resolved]
  - Conjunctival hyperaemia [Recovered/Resolved]
  - Symblepharon [Recovered/Resolved]
  - Entropion [Recovered/Resolved]
  - Inflammation [Recovered/Resolved]
